FAERS Safety Report 16597771 (Version 1)
Quarter: 2019Q3

REPORT INFORMATION
  Report Type: Report from Study
  Country: IT (occurrence: IT)
  Receive Date: 20190719
  Receipt Date: 20190719
  Transmission Date: 20191004
  Serious: Yes (Other)
  Sender: FDA-Public Use
  Company Number: IT-MYLANLABS-2019M1067278

PATIENT
  Age: 57 Year
  Sex: Male
  Weight: 100 kg

DRUGS (14)
  1. PANTOPRAZOLE [Concomitant]
     Active Substance: PANTOPRAZOLE
     Dosage: 40 MILLIGRAM
     Route: 048
  2. VANCOMYCIN [Suspect]
     Active Substance: VANCOMYCIN
     Indication: CELLULITIS
     Dosage: 1500 MILLIGRAM, QW
     Route: 065
     Dates: start: 20180501, end: 20180523
  3. SODIUM HYDROGEN CARBONATE [Concomitant]
     Active Substance: SODIUM BICARBONATE
     Dosage: 2000 MILLIGRAM
  4. ENOXAPARIN SODIUM. [Concomitant]
     Active Substance: ENOXAPARIN SODIUM
     Dosage: 4000 KILO-INTERNATIONAL UNIT
     Route: 058
  5. KAYEXALATE [Concomitant]
     Active Substance: SODIUM POLYSTYRENE SULFONATE
     Dosage: 1 DOSAGE FORM
     Route: 048
  6. SEVELAMER [Concomitant]
     Active Substance: SEVELAMER
     Dosage: 3200 MILLIGRAM, QD
     Route: 048
  7. GENTAMICIN. [Suspect]
     Active Substance: GENTAMICIN
     Indication: CELLULITIS
     Dosage: 480 MILLIGRAM, QW
     Route: 042
     Dates: start: 20180501, end: 20180523
  8. EPOETIN THETA [Concomitant]
     Active Substance: ERYTHROPOIETIN
     Dosage: UNK
  9. PARICALCITOL. [Concomitant]
     Active Substance: PARICALCITOL
     Dosage: 2 MICROGRAM
     Route: 048
  10. PREGABALIN. [Concomitant]
     Active Substance: PREGABALIN
     Dosage: 75 MILLIGRAM
     Route: 048
  11. CINACALCET HYDROCHLORIDE. [Concomitant]
     Active Substance: CINACALCET HYDROCHLORIDE
     Dosage: 60 MILLIGRAM
     Route: 048
  12. ATENOLOL. [Concomitant]
     Active Substance: ATENOLOL
     Dosage: 25 MILLIGRAM
     Route: 048
  13. MAALOX TC [Concomitant]
     Dosage: 2 DOSAGE FORM
     Route: 048
  14. COLECALCIFEROL [Concomitant]
     Active Substance: CHOLECALCIFEROL
     Dosage: 10 GTT DROPS (1/12 MILLILITRE))
     Route: 048

REACTIONS (2)
  - Balance disorder [Recovered/Resolved with Sequelae]
  - Vestibular disorder [Recovered/Resolved with Sequelae]

NARRATIVE: CASE EVENT DATE: 20180520
